FAERS Safety Report 20050303 (Version 1)
Quarter: 2021Q4

REPORT INFORMATION
  Report Type: Spontaneous
  Country: JP (occurrence: JP)
  Receive Date: 20211109
  Receipt Date: 20211109
  Transmission Date: 20220303
  Serious: Yes (Hospitalization, Other)
  Sender: FDA-Public Use
  Company Number: JP-GILEAD-2021-0555313

PATIENT
  Age: 85 Year
  Sex: Male

DRUGS (1)
  1. VEMLIDY [Suspect]
     Active Substance: TENOFOVIR ALAFENAMIDE FUMARATE
     Indication: Hepatitis B
     Dosage: 25 MG
     Route: 048

REACTIONS (4)
  - Oesophageal carcinoma recurrent [Not Recovered/Not Resolved]
  - Cognitive disorder [Not Recovered/Not Resolved]
  - Paralysis recurrent laryngeal nerve [Not Recovered/Not Resolved]
  - Dysphagia [Not Recovered/Not Resolved]
